FAERS Safety Report 16349161 (Version 3)
Quarter: 2019Q3

REPORT INFORMATION
  Report Type: Spontaneous
  Country: JP (occurrence: JP)
  Receive Date: 20190523
  Receipt Date: 20190801
  Transmission Date: 20191004
  Serious: Yes (Death, Hospitalization, Other)
  Sender: FDA-Public Use
  Company Number: JP-ASTRAZENECA-2019SE76789

PATIENT
  Age: 26037 Day
  Sex: Male
  Weight: 57 kg

DRUGS (11)
  1. MAGMITT [Concomitant]
     Active Substance: MAGNESIUM OXIDE
     Indication: CONSTIPATION
     Route: 048
     Dates: start: 20180912, end: 20190328
  2. PROMAC [Concomitant]
     Active Substance: NITROFURANTOIN
     Indication: OESOPHAGITIS
     Route: 048
     Dates: start: 20181024, end: 20190328
  3. ALLOID G [Concomitant]
     Active Substance: SODIUM ALGINATE
     Indication: OESOPHAGITIS
     Route: 048
     Dates: start: 20181024, end: 20190328
  4. THEOPHYLLINE [Concomitant]
     Active Substance: THEOPHYLLINE ANHYDROUS
     Indication: CHRONIC OBSTRUCTIVE PULMONARY DISEASE
     Route: 048
     Dates: start: 20180912, end: 20190328
  5. CISPLATIN. [Concomitant]
     Active Substance: CISPLATIN
     Indication: MALIGNANT PLEURAL EFFUSION
     Route: 038
     Dates: start: 20181124, end: 20181124
  6. CODEINE [Concomitant]
     Active Substance: CODEINE
     Indication: CHRONIC OBSTRUCTIVE PULMONARY DISEASE
     Route: 048
     Dates: start: 20180912, end: 20190328
  7. NEXIUM [Concomitant]
     Active Substance: ESOMEPRAZOLE MAGNESIUM
  8. CLARITH [Concomitant]
     Active Substance: CLARITHROMYCIN
     Indication: CHRONIC OBSTRUCTIVE PULMONARY DISEASE
     Route: 048
     Dates: start: 20180912, end: 20190328
  9. ONBREZ [Concomitant]
     Active Substance: INDACATEROL
     Indication: CHRONIC OBSTRUCTIVE PULMONARY DISEASE
     Route: 055
     Dates: start: 20181016, end: 20190328
  10. IMFINZI [Suspect]
     Active Substance: DURVALUMAB
     Indication: NON-SMALL CELL LUNG CANCER
     Route: 042
     Dates: start: 20181107, end: 20181121
  11. IMFINZI [Suspect]
     Active Substance: DURVALUMAB
     Indication: NON-SMALL CELL LUNG CANCER
     Route: 042
     Dates: start: 20190109, end: 20190109

REACTIONS (8)
  - Malignant pleural effusion [Unknown]
  - Radiation fibrosis - lung [Fatal]
  - Seizure [Unknown]
  - Metastases to lymph nodes [Fatal]
  - Metastases to adrenals [Fatal]
  - Metastases to spine [Fatal]
  - Depressed level of consciousness [Unknown]
  - Interstitial lung disease [Fatal]

NARRATIVE: CASE EVENT DATE: 20181124
